FAERS Safety Report 8130962-0 (Version None)
Quarter: 2012Q1

REPORT INFORMATION
  Report Type: 
  Country: None (occurrence: None)
  Receive Date: 20120213
  Receipt Date: 20120209
  Transmission Date: 20120608
  Serious: Yes (Other)
  Sender: FDA-Public Use
  Company Number: US-PFIZER INC-2012036483

PATIENT
  Sex: Female
  Weight: 98.413 kg

DRUGS (6)
  1. HYDROXYCHLOROQUINE [Concomitant]
     Indication: HYPERSENSITIVITY
     Dosage: UNK
  2. LEVOTHYROXINE [Concomitant]
     Dosage: UNK
  3. LIPITOR [Suspect]
     Indication: BLOOD CHOLESTEROL INCREASED
     Dosage: 40 MG, 1X/DAY
     Route: 048
  4. LIPITOR [Suspect]
     Indication: CARDIAC MURMUR
  5. BENICAR [Concomitant]
     Indication: HYPERTENSION
     Dosage: UNK
  6. ATENOLOL [Concomitant]
     Indication: HYPERTENSION
     Dosage: UNK

REACTIONS (1)
  - DIABETES MELLITUS [None]
